FAERS Safety Report 6685830-8 (Version None)
Quarter: 2010Q2

REPORT INFORMATION
  Report Type: 
  Country: None (occurrence: None)
  Receive Date: 20100415
  Receipt Date: 20100415
  Transmission Date: 20101027
  Serious: No
  Sender: FDA-Public Use
  Company Number: None

PATIENT
  Sex: Female
  Weight: 58.9676 kg

DRUGS (1)
  1. ARM AND HAMMER ADVANCED CLEANING TOOTHPASTE [Suspect]
     Indication: DENTAL DISORDER PROPHYLAXIS
     Dates: start: 20100101, end: 20100104

REACTIONS (2)
  - ORAL DISORDER [None]
  - TONGUE DISORDER [None]
